FAERS Safety Report 5237038-0 (Version None)
Quarter: 2007Q1

REPORT INFORMATION
  Report Type: 
  Country: None (occurrence: None)
  Receive Date: 20070209
  Receipt Date: 20070205
  Transmission Date: 20070707
  Serious: Yes (Death)
  Sender: FDA-Public Use
  Company Number: 2007-154045-NL

PATIENT
  Age: 30 Year
  Sex: Male

DRUGS (2)
  1. NANDROLONE DECANOATE [Suspect]
     Dosage: DF,
  2. ANDROGENIC ANABOLIC STEROIDS [Concomitant]

REACTIONS (10)
  - CARDIAC DISORDER [None]
  - DRUG ABUSER [None]
  - FALL [None]
  - HEPATOMEGALY [None]
  - MUSCLE DISORDER [None]
  - MYOCARDIAL FIBROSIS [None]
  - PELIOSIS HEPATIS [None]
  - SUDDEN CARDIAC DEATH [None]
  - TESTICULAR ATROPHY [None]
  - TOXICOLOGIC TEST ABNORMAL [None]
